FAERS Safety Report 25053010 (Version 3)
Quarter: 2025Q4

REPORT INFORMATION
  Report Type: Spontaneous
  Country: US (occurrence: US)
  Receive Date: 20250307
  Receipt Date: 20251211
  Transmission Date: 20260118
  Serious: No
  Sender: SANOFI AVENTIS
  Company Number: US-SA-2025SA061811

PATIENT
  Age: 48 Year
  Sex: Female

DRUGS (2)
  1. DUPIXENT [Suspect]
     Active Substance: DUPILUMAB
     Indication: Nasal polyps
     Dosage: 300 MG, QOW
     Route: 058
     Dates: start: 20240916, end: 20250214
  2. DUPIXENT [Suspect]
     Active Substance: DUPILUMAB
     Indication: Nasal polyps
     Dosage: 300 MG, QOW
     Route: 058
     Dates: start: 20250220, end: 202509

REACTIONS (10)
  - Fear of injection [Unknown]
  - Upper-airway cough syndrome [Recovered/Resolved]
  - Anosmia [Unknown]
  - Nasal congestion [Unknown]
  - Rebound effect [Unknown]
  - Nasopharyngitis [Recovered/Resolved]
  - Pruritus [Unknown]
  - Injection site pain [Unknown]
  - Intentional dose omission [Unknown]
  - Drug ineffective [Unknown]

NARRATIVE: CASE EVENT DATE: 20250101
